FAERS Safety Report 25630228 (Version 1)
Quarter: 2025Q3

REPORT INFORMATION
  Report Type: Spontaneous
  Country: CN (occurrence: CN)
  Receive Date: 20250801
  Receipt Date: 20250801
  Transmission Date: 20251021
  Serious: Yes (Hospitalization)
  Sender: BAXTER
  Company Number: None

PATIENT
  Age: 53 Year
  Sex: Female
  Weight: 52 kg

DRUGS (1)
  1. CYCLOPHOSPHAMIDE [Suspect]
     Active Substance: CYCLOPHOSPHAMIDE
     Indication: Acute myeloid leukaemia
     Dosage: 2 G, QD
     Route: 041
     Dates: start: 20250716, end: 20250716

REACTIONS (18)
  - Epilepsy [Recovering/Resolving]
  - Maxillofacial pain [Recovering/Resolving]
  - Muscle rigidity [Recovering/Resolving]
  - Seizure [Recovered/Resolved]
  - Foaming at mouth [Recovering/Resolving]
  - Gaze palsy [Recovering/Resolving]
  - Loss of consciousness [Recovered/Resolved]
  - Hyperhidrosis [Recovering/Resolving]
  - Miosis [Recovering/Resolving]
  - Pupillary reflex impaired [Recovering/Resolving]
  - Muscular weakness [Recovering/Resolving]
  - Cold sweat [Recovering/Resolving]
  - Confusional state [Recovered/Resolved]
  - Cognitive disorder [Recovered/Resolved]
  - Depressed mood [Recovering/Resolving]
  - Neuralgia [Recovering/Resolving]
  - Haemorrhage [Unknown]
  - Discomfort [Unknown]

NARRATIVE: CASE EVENT DATE: 20250716
